FAERS Safety Report 5406210-9 (Version None)
Quarter: 2007Q3

REPORT INFORMATION
  Report Type: 
  Country: None (occurrence: None)
  Receive Date: 20070802
  Receipt Date: 20070802
  Transmission Date: 20080115
  Serious: Yes (Hospitalization, Other)
  Sender: FDA-Public Use
  Company Number: None

PATIENT
  Sex: Female
  Weight: 62 kg

DRUGS (2)
  1. AVELOX [Suspect]
     Indication: SINUSITIS
     Dosage: 400 MG ONE TAB PER DAY 3 DAYS USE OUT OF 10
     Dates: start: 20070718, end: 20070720
  2. AVELOX [Suspect]
     Indication: SINUSITIS
     Dosage: 400 MG ONE TAB PER DAY 3 DAYS USE OUT OF 10
     Dates: start: 20070720, end: 20070720

REACTIONS (10)
  - ANXIETY [None]
  - ARTHRALGIA [None]
  - DYSPEPSIA [None]
  - FATIGUE [None]
  - FEELING ABNORMAL [None]
  - GAIT DISTURBANCE [None]
  - MOOD SWINGS [None]
  - MUSCULAR WEAKNESS [None]
  - PARAESTHESIA [None]
  - TREMOR [None]
